FAERS Safety Report 5767709-9 (Version None)
Quarter: 2008Q2

REPORT INFORMATION
  Report Type: 
  Country: None (occurrence: None)
  Receive Date: 20080612
  Receipt Date: 20080607
  Transmission Date: 20081010
  Serious: Yes (Hospitalization)
  Sender: FDA-Public Use
  Company Number: US-KINGPHARMUSA00001-K200800650

PATIENT

DRUGS (8)
  1. LEVOXYL [Suspect]
     Dosage: 25 MCG, QD
     Route: 048
     Dates: start: 20071201, end: 20080320
  2. LEVOXYL [Suspect]
     Dosage: 25 MCG, QD
     Route: 048
     Dates: start: 19980101
  3. LEVOXYL [Suspect]
     Dosage: 50 MCG, QD
     Route: 048
  4. LEVOXYL [Suspect]
     Dosage: 75 MCG, QD
     Route: 048
  5. LEVOXYL [Suspect]
     Dosage: 100 MCG, QD
     Route: 048
  6. LEVOXYL [Suspect]
     Dosage: 100 MCG, QD
     Route: 048
     Dates: start: 20080401
  7. METOPROLOL [Concomitant]
     Indication: HYPERTENSION
  8. GEMFIBROZIL [Concomitant]
     Indication: BLOOD CHOLESTEROL INCREASED
     Dosage: UNK, UNK
     Dates: end: 20080320

REACTIONS (7)
  - ASTHENIA [None]
  - BLISTER [None]
  - FATIGUE [None]
  - GENERAL PHYSICAL CONDITION ABNORMAL [None]
  - MYOSITIS [None]
  - SKIN IRRITATION [None]
  - SYNCOPE [None]
